FAERS Safety Report 18124419 (Version 1)
Quarter: 2020Q3

REPORT INFORMATION
  Report Type: Spontaneous
  Country: US (occurrence: US)
  Receive Date: 20200807
  Receipt Date: 20200807
  Transmission Date: 20201103
  Serious: Yes (Other)
  Sender: FDA-Public Use
  Company Number: US-PFIZER INC-2020298249

PATIENT

DRUGS (1)
  1. VIAGRA [Suspect]
     Active Substance: SILDENAFIL CITRATE
     Dosage: UNK

REACTIONS (5)
  - Intentional product misuse [Unknown]
  - Erection increased [Unknown]
  - Insomnia [Unknown]
  - Prescription drug used without a prescription [Unknown]
  - Drug ineffective [Unknown]
